FAERS Safety Report 4290242-0 (Version None)
Quarter: 2004Q1

REPORT INFORMATION
  Report Type: 
  Country: None (occurrence: None)
  Receive Date: 20040126
  Receipt Date: 20031010
  Transmission Date: 20041129
  Serious: No
  Sender: FDA-Public Use
  Company Number: USA030434529

PATIENT
  Age: 69 Year
  Sex: Female
  Weight: 77 kg

DRUGS (13)
  1. FORTEO [Suspect]
     Indication: OSTEOPOROSIS
     Dates: start: 20030415
  2. COUMADIN [Concomitant]
  3. DIOVAN [Concomitant]
  4. LIPITOR [Concomitant]
  5. ZYRTEC [Concomitant]
  6. SYNTHROID (LEVOHYROXINE SODIUM) [Concomitant]
  7. NEXIUM [Concomitant]
  8. MULTI-VITAMIN [Concomitant]
  9. CALTRATE (CALCIUM CARBONATE) [Concomitant]
  10. TEQUIN [Concomitant]
  11. COMBIVENT [Concomitant]
  12. EPIPEN (EPINEPHRINE) [Concomitant]
  13. FLONASE [Concomitant]

REACTIONS (4)
  - BLOOD ALKALINE PHOSPHATASE INCREASED [None]
  - INJECTION SITE ERYTHEMA [None]
  - INJECTION SITE PAIN [None]
  - INTERNATIONAL NORMALISED RATIO ABNORMAL [None]
